FAERS Safety Report 8064934-1 (Version None)
Quarter: 2012Q1

REPORT INFORMATION
  Report Type: 
  Country: None (occurrence: None)
  Receive Date: 20120124
  Receipt Date: 20120113
  Transmission Date: 20120608
  Serious: No
  Sender: FDA-Public Use
  Company Number: US-BIOGENIDEC-2012BI001836

PATIENT
  Age: 47 Year
  Sex: Female

DRUGS (3)
  1. TYSABRI [Suspect]
     Indication: MULTIPLE SCLEROSIS
     Route: 042
  2. TYSABRI [Suspect]
     Route: 042
     Dates: start: 20071116, end: 20071116
  3. AVONEX [Concomitant]
     Indication: MULTIPLE SCLEROSIS
     Route: 030
     Dates: start: 20050415, end: 20071017

REACTIONS (6)
  - NERVE INJURY [None]
  - GENERAL SYMPTOM [None]
  - PSORIASIS [None]
  - DYSSTASIA [None]
  - MOBILITY DECREASED [None]
  - HYPOAESTHESIA [None]
